FAERS Safety Report 9714219 (Version 1)
Quarter: 2013Q4

REPORT INFORMATION
  Report Type: Spontaneous
  Country: US (occurrence: US)
  Receive Date: 20131126
  Receipt Date: 20131126
  Transmission Date: 20140711
  Serious: No
  Sender: FDA-Public Use
  Company Number: US-GILEAD-2008-0019401

PATIENT
  Sex: Female
  Weight: 45.36 kg

DRUGS (7)
  1. LETAIRIS [Suspect]
     Indication: PULMONARY ARTERIAL HYPERTENSION
     Route: 048
     Dates: start: 20080823
  2. REVATIO [Concomitant]
  3. COUMADIN [Concomitant]
  4. SPIRONOLACTONE [Concomitant]
  5. DEPO-PROVERA INJ [Concomitant]
  6. ZANTAC [Concomitant]
  7. TYLENOL 8 HOUR [Concomitant]

REACTIONS (3)
  - Abdominal pain upper [None]
  - Sinus disorder [None]
  - Palpitations [None]
